FAERS Safety Report 19326773 (Version 1)
Quarter: 2021Q2

REPORT INFORMATION
  Report Type: Spontaneous
  Country: FR (occurrence: FR)
  Receive Date: 20210528
  Receipt Date: 20210528
  Transmission Date: 20210717
  Serious: Yes (Life-Threatening)
  Sender: FDA-Public Use
  Company Number: FR-TEVA-2021-FR-1915493

PATIENT
  Age: 66 Year
  Sex: Male

DRUGS (9)
  1. ATORVASTATINE [Concomitant]
     Active Substance: ATORVASTATIN
  2. IRBESARTAN. [Suspect]
     Active Substance: IRBESARTAN
     Indication: HYPERTENSION
     Dosage: UNIT DOSE: 150 MILLIGRAM
     Route: 048
     Dates: end: 20190528
  3. DAFALGAN [Concomitant]
     Active Substance: ACETAMINOPHEN
  4. INIPOMP [Concomitant]
     Active Substance: PANTOPRAZOLE SODIUM
  5. EZETROL [Concomitant]
     Active Substance: EZETIMIBE
  6. TRULICITY [Concomitant]
     Active Substance: DULAGLUTIDE
  7. LOVENOX [Concomitant]
     Active Substance: ENOXAPARIN SODIUM
  8. UVEDOSE [Concomitant]
     Active Substance: CHOLECALCIFEROL
  9. PREGABALINE [Concomitant]
     Active Substance: PREGABALIN

REACTIONS (2)
  - Hyperkalaemia [Recovered/Resolved]
  - Acute kidney injury [Recovered/Resolved]

NARRATIVE: CASE EVENT DATE: 20190417
